FAERS Safety Report 6646823-X (Version None)
Quarter: 2010Q1

REPORT INFORMATION
  Report Type: 
  Country: None (occurrence: None)
  Receive Date: 20100323
  Receipt Date: 20100315
  Transmission Date: 20100710
  Serious: Yes (Hospitalization)
  Sender: FDA-Public Use
  Company Number: FI-GENENTECH-227266

PATIENT
  Sex: Male
  Weight: 111 kg

DRUGS (9)
  1. RITUXIMAB [Suspect]
     Indication: B-CELL LYMPHOMA
     Dosage: 840 MG, UNK
     Route: 042
     Dates: start: 20060627
  2. CYCLOPHOSPHAMIDE [Suspect]
     Indication: B-CELL LYMPHOMA
     Dosage: 1650 MG, UNK
     Route: 042
     Dates: start: 20060627
  3. DOXORUBICIN HCL [Suspect]
     Indication: B-CELL LYMPHOMA
     Dosage: 110 MG, UNK
     Route: 042
     Dates: start: 20060627
  4. ONCOVIN [Suspect]
     Indication: B-CELL LYMPHOMA
     Dosage: 2 MG, UNK
     Route: 042
     Dates: start: 20060627
  5. PREDNISONE TAB [Suspect]
     Indication: B-CELL LYMPHOMA
     Dosage: 100 MG, UNK
     Route: 048
     Dates: start: 20060627
  6. PARACETAMOL [Suspect]
     Indication: B-CELL LYMPHOMA
     Dosage: 1 G, UNK
     Route: 048
     Dates: start: 20060627
  7. CETIRIZINE [Suspect]
     Indication: B-CELL LYMPHOMA
     Dosage: 10 MG, UNK
     Route: 048
     Dates: start: 20060627
  8. ONDANSETRON [Suspect]
     Indication: B-CELL LYMPHOMA
     Dosage: 8 MG, UNK
     Route: 048
     Dates: start: 20060816, end: 20060827
  9. PEGFILGRASTIM [Suspect]
     Indication: B-CELL LYMPHOMA
     Dosage: 6 MG, UNK
     Route: 058
     Dates: start: 20060817, end: 20060827

REACTIONS (1)
  - NEUTROPENIC INFECTION [None]
